FAERS Safety Report 22086039 (Version 2)
Quarter: 2023Q4

REPORT INFORMATION
  Report Type: Spontaneous
  Country: AU (occurrence: AU)
  Receive Date: 20230310
  Receipt Date: 20231206
  Transmission Date: 20240110
  Serious: Yes (Disabling)
  Sender: FDA-Public Use
  Company Number: AU-BAUSCHBL-2023BNL001913

PATIENT
  Age: 73 Year
  Sex: Male
  Weight: 73 kg

DRUGS (5)
  1. PREDNISOLONE [Suspect]
     Active Substance: PREDNISOLONE
     Indication: Product used for unknown indication
     Route: 065
  2. ASTRAZENECA COVID-19 VACCINE [Suspect]
     Active Substance: AZD-1222
     Indication: COVID-19
     Route: 030
     Dates: start: 20210908
  3. COMIRNATY (TOZINAMERAN) [Suspect]
     Active Substance: TOZINAMERAN
     Indication: COVID-19
     Route: 065
     Dates: start: 20220112
  4. COMIRNATY (TOZINAMERAN) [Suspect]
     Active Substance: TOZINAMERAN
     Route: 065
     Dates: start: 20220413
  5. PREDNISOLONE SODIUM PHOSPHATE [Concomitant]
     Active Substance: PREDNISOLONE SODIUM PHOSPHATE
     Indication: Product used for unknown indication
     Dates: start: 20211109

REACTIONS (9)
  - Polymyalgia rheumatica [Not Recovered/Not Resolved]
  - Fall [Unknown]
  - Pain [Unknown]
  - Skin atrophy [Unknown]
  - Contusion [Unknown]
  - Haemorrhage [Unknown]
  - Insomnia [Unknown]
  - Interchange of vaccine products [Unknown]
  - Off label use [Unknown]

NARRATIVE: CASE EVENT DATE: 20210930
